FAERS Safety Report 7283523-X (Version None)
Quarter: 2011Q1

REPORT INFORMATION
  Report Type: 
  Country: None (occurrence: None)
  Receive Date: 20110125
  Receipt Date: 20110106
  Transmission Date: 20110831
  Serious: Yes (Life-Threatening, Disabling, Other)
  Sender: FDA-Public Use
  Company Number: 2010P1002072

PATIENT
  Age: 24 Year
  Sex: Female

DRUGS (5)
  1. BENZOYL PEROXIDE 10% GEL [Concomitant]
  2. CARBAMAZEPINE [Suspect]
     Indication: BIPOLAR DISORDER
     Dosage: 400 MG; QD;
     Dates: start: 20080626, end: 20080711
  3. TETRACYCLINE [Suspect]
     Indication: FOLLICULITIS
     Dosage: 500 MG; BID; PO
     Route: 048
     Dates: start: 20080704, end: 20080712
  4. ALBUTEROL [Concomitant]
  5. CARBAMAZEPINE [Suspect]
     Indication: BIPOLAR DISORDER
     Dosage: 400 MG; QD;
     Dates: start: 20080626, end: 20080711

REACTIONS (47)
  - ANXIETY [None]
  - DROOLING [None]
  - VOMITING [None]
  - URINARY TRACT INFECTION [None]
  - ILEUS [None]
  - PANCREATITIS ACUTE [None]
  - RENAL FAILURE ACUTE [None]
  - RASH [None]
  - ONYCHOMADESIS [None]
  - URTICARIA [None]
  - ACTIVITIES OF DAILY LIVING IMPAIRED [None]
  - NAUSEA [None]
  - SEPSIS [None]
  - ASTHMA [None]
  - INJURY [None]
  - PAIN [None]
  - FOLLICULITIS [None]
  - BLOOD SODIUM DECREASED [None]
  - BLOOD POTASSIUM DECREASED [None]
  - EYE PAIN [None]
  - SKIN EXFOLIATION [None]
  - EMOTIONAL DISTRESS [None]
  - TACHYCARDIA [None]
  - PRURITUS [None]
  - ALOPECIA [None]
  - SCAR [None]
  - TOXIC EPIDERMAL NECROLYSIS [None]
  - THERMAL BURN [None]
  - BLOOD ELECTROLYTES ABNORMAL [None]
  - SKIN DISCOLOURATION [None]
  - SWELLING [None]
  - HYPERSENSITIVITY [None]
  - BIPOLAR DISORDER [None]
  - SICKLE CELL TRAIT [None]
  - ANHEDONIA [None]
  - DYSPHAGIA [None]
  - GENITAL LESION [None]
  - DEPRESSION [None]
  - VAGINAL DISCHARGE [None]
  - LUNG INFECTION PSEUDOMONAL [None]
  - PIGMENTATION DISORDER [None]
  - STEVENS-JOHNSON SYNDROME [None]
  - DISABILITY [None]
  - BLOOD GLUCOSE INCREASED [None]
  - PNEUMONIA [None]
  - BACTERAEMIA [None]
  - SCHIZOPHRENIA [None]
